FAERS Safety Report 13822684 (Version 4)
Quarter: 2017Q4

REPORT INFORMATION
  Report Type: Report from Study
  Country: US (occurrence: US)
  Receive Date: 20170801
  Receipt Date: 20171031
  Transmission Date: 20180320
  Serious: Yes (Hospitalization)
  Sender: FDA-Public Use
  Company Number: US-ACTELION-A-US2017-157506

PATIENT
  Age: 75 Year
  Sex: Female

DRUGS (32)
  1. ELIQUIS [Concomitant]
     Active Substance: APIXABAN
  2. ROCALTROL [Concomitant]
     Active Substance: CALCITRIOL
     Dosage: 0.25 MG, QD
     Route: 048
     Dates: start: 20170626, end: 20170726
  3. ZOSTRIX ORIGINAL STRENGTH [Concomitant]
     Active Substance: CAPSAICIN
     Dosage: 0.025%, BID
     Route: 061
     Dates: start: 20170626
  4. ARANESP [Concomitant]
     Active Substance: DARBEPOETIN ALFA
     Dosage: 40 MCG, WEEKLY
     Route: 058
  5. AFRIN [Concomitant]
     Active Substance: OXYMETAZOLINE
     Dosage: 2 SPRYAS EACH NOSE, 2 X DAILY
  6. LEXAPRO [Concomitant]
     Active Substance: ESCITALOPRAM OXALATE
     Dosage: 20 MG, QD
  7. ADVAIR HFA [Concomitant]
     Active Substance: FLUTICASONE PROPIONATE\SALMETEROL XINAFOATE
     Dosage: 1 PUFF, Q12HRS
     Route: 045
  8. COUMADIN [Concomitant]
     Active Substance: WARFARIN SODIUM
     Dosage: 10 MG, TAKE 0.5 MG QD
     Route: 048
  9. RENVELA [Concomitant]
     Active Substance: SEVELAMER CARBONATE
     Dosage: 0.8 G, TID
     Route: 048
  10. HEPARIN [Concomitant]
     Active Substance: HEPARIN SODIUM
     Dosage: 10,000 UNITS QD PRN
  11. NORVASC [Concomitant]
     Active Substance: AMLODIPINE BESYLATE
     Dosage: 10 MG, QD
     Dates: start: 20170626, end: 20170726
  12. CLONAZEPAM. [Concomitant]
     Active Substance: CLONAZEPAM
     Dosage: 0.25 MG, BID
     Route: 048
     Dates: start: 20170626, end: 20170726
  13. PREDNISONE. [Concomitant]
     Active Substance: PREDNISONE
     Dosage: 10 MG, QD
     Route: 048
  14. ATROVENT [Concomitant]
     Active Substance: IPRATROPIUM BROMIDE
     Dosage: 0.5 MG, 0.02% NEBULIZER SOLUTION 6XDAILY
  15. NOVOLOG [Concomitant]
     Active Substance: INSULIN ASPART
     Dosage: 0-6 UNITS, TID
  16. NOVOLOG [Concomitant]
     Active Substance: INSULIN ASPART
     Dosage: 30 UNITS NIGHTLY
  17. FLUTICASONE. [Concomitant]
     Active Substance: FLUTICASONE
     Dosage: 50 MCG, 2 SPRYAS BY NASAL ROUTE FOR 30 DAYS
  18. VENTAVIS [Suspect]
     Active Substance: ILOPROST
     Indication: PULMONARY ARTERIAL HYPERTENSION
     Dosage: 2.6 MCG, QID
     Route: 055
     Dates: start: 20150228
  19. VENTAVIS [Suspect]
     Active Substance: ILOPROST
     Dosage: UNK UNK, QID
     Route: 055
  20. NOVOLOG [Concomitant]
     Active Substance: INSULIN ASPART
     Dosage: 0-13 UNITS TID
  21. LYRICA [Concomitant]
     Active Substance: PREGABALIN
     Dosage: 25 MG, Q12HRS
     Route: 048
  22. DIOVAN [Concomitant]
     Active Substance: VALSARTAN
     Dosage: 80 MG, QD FOR 30 DAYS
     Route: 048
  23. LIPITOR [Concomitant]
     Active Substance: ATORVASTATIN CALCIUM
     Dosage: 1 TAB QD FOR 30 DAYS
     Route: 048
     Dates: start: 20170626, end: 20170726
  24. REVATIO [Concomitant]
     Active Substance: SILDENAFIL CITRATE
     Dosage: 40 MG, TID
  25. APRESOLINE HYDROCHLORIDE [Concomitant]
     Active Substance: HYDRALAZINE HYDROCHLORIDE
     Dosage: 50 MG, Q8H
     Route: 048
  26. TYLENOL [Concomitant]
     Active Substance: ACETAMINOPHEN
     Dosage: 2 TABS BY MOUTH EVERY 6 HRS AS NEEDED
  27. LANTUS [Concomitant]
     Active Substance: INSULIN GLARGINE
     Dosage: 100 UNIT/ML / 12 UNITS
  28. COLCHICINE. [Concomitant]
     Active Substance: COLCHICINE
     Dosage: 0.3 MG, EVERY TUE, THU AND SAT
     Route: 048
  29. COLCHICINE. [Concomitant]
     Active Substance: COLCHICINE
     Dosage: 0.5 TAB EVERY TUE, THU AND SAT
     Route: 048
  30. PROTONIX [Concomitant]
     Active Substance: PANTOPRAZOLE SODIUM
     Dosage: 40 MG, BID
     Route: 048
  31. BUMEX [Concomitant]
     Active Substance: BUMETANIDE
     Dosage: 6 MG, QD
     Route: 048
     Dates: start: 20170717
  32. GLUCAGON. [Concomitant]
     Active Substance: GLUCAGON
     Dosage: 1 MG, QD

REACTIONS (17)
  - Dysuria [Recovered/Resolved]
  - Hyponatraemia [Unknown]
  - Urinary tract infection [Recovered/Resolved]
  - Nausea [Recovered/Resolved]
  - Malaise [Recovered/Resolved]
  - Limb injury [Not Recovered/Not Resolved]
  - Dyspnoea [Recovering/Resolving]
  - Blood potassium increased [Unknown]
  - Pulmonary embolism [Recovered/Resolved]
  - Chills [Recovered/Resolved]
  - Pneumonia [Recovered/Resolved]
  - Abdominal pain [Recovered/Resolved]
  - Fluid overload [Unknown]
  - Jugular vein thrombosis [Recovered/Resolved]
  - Diarrhoea [Recovered/Resolved]
  - Haemodialysis [Unknown]
  - Musculoskeletal pain [Not Recovered/Not Resolved]

NARRATIVE: CASE EVENT DATE: 20170710
